FAERS Safety Report 6956126-1 (Version None)
Quarter: 2010Q3

REPORT INFORMATION
  Report Type: 
  Country: None (occurrence: None)
  Receive Date: 20100830
  Receipt Date: 20091204
  Transmission Date: 20110219
  Serious: No
  Sender: FDA-Public Use
  Company Number: US-BAUSCH-2009BL006424

PATIENT
  Age: 50 Year
  Sex: Female
  Weight: 65 kg

DRUGS (2)
  1. CROMOLYN SODIUM [Suspect]
     Indication: SEASONAL ALLERGY
     Route: 049
     Dates: start: 20091201, end: 20091203
  2. CROMOLYN SODIUM [Suspect]
     Indication: HYPERSENSITIVITY
     Route: 049
     Dates: start: 20091201, end: 20091203

REACTIONS (2)
  - EXPIRED DRUG ADMINISTERED [None]
  - RHINALGIA [None]
